FAERS Safety Report 15731143 (Version 1)
Quarter: 2018Q4

REPORT INFORMATION
  Report Type: Report from Study
  Country: JP (occurrence: JP)
  Receive Date: 20181217
  Receipt Date: 20181217
  Transmission Date: 20190205
  Serious: Yes (Hospitalization)
  Sender: FDA-Public Use
  Company Number: JP-ASTRAZENECA-2017SE18916

PATIENT
  Age: 70 Year
  Sex: Male

DRUGS (19)
  1. PANALDINE [Concomitant]
     Active Substance: TICLOPIDINE HYDROCHLORIDE
     Route: 048
  2. AMARYL [Concomitant]
     Active Substance: GLIMEPIRIDE
  3. GASTER [Concomitant]
     Active Substance: FAMOTIDINE
  4. ZYLORIC [Concomitant]
     Active Substance: ALLOPURINOL
  5. DANTRIUM [Concomitant]
     Active Substance: DANTROLENE SODIUM
  6. FLIVAS [Concomitant]
     Active Substance: NAFTOPIDIL
  7. LUPRAC [Concomitant]
     Active Substance: TORSEMIDE
  8. CRESTOR [Concomitant]
     Active Substance: ROSUVASTATIN CALCIUM
  9. MAGMITT [Concomitant]
     Active Substance: MAGNESIUM OXIDE
     Route: 048
  10. ACTOS [Concomitant]
     Active Substance: PIOGLITAZONE HYDROCHLORIDE
     Dates: end: 20170623
  11. METGLUCO [Concomitant]
     Active Substance: METFORMIN HYDROCHLORIDE
  12. ZACRAS [Concomitant]
     Active Substance: AMLODIPINE BESYLATE\AZILSARTAN
  13. DAIKENCHUTO [Concomitant]
     Active Substance: HERBALS
     Route: 048
  14. ALLEGRA [Concomitant]
     Active Substance: FEXOFENADINE HYDROCHLORIDE
     Route: 048
  15. MUCOSAL-L [Concomitant]
  16. ONGLYZA [Suspect]
     Active Substance: SAXAGLIPTIN HYDROCHLORIDE
     Indication: TYPE 2 DIABETES MELLITUS
     Route: 048
     Dates: start: 20140822
  17. BLOPRESS [Concomitant]
     Active Substance: CANDESARTAN CILEXETIL
  18. BAYASPIRIN [Concomitant]
     Active Substance: ASPIRIN
  19. SELBEX [Concomitant]
     Active Substance: TEPRENONE
     Route: 048

REACTIONS (4)
  - Hypertension [Recovering/Resolving]
  - Sputum retention [Not Recovered/Not Resolved]
  - Ileus [Recovering/Resolving]
  - Bronchitis [Recovering/Resolving]

NARRATIVE: CASE EVENT DATE: 20150710
